FAERS Safety Report 11088624 (Version 1)
Quarter: 2015Q2

REPORT INFORMATION
  Report Type: Spontaneous
  Country: US (occurrence: US)
  Receive Date: 20150504
  Receipt Date: 20150504
  Transmission Date: 20150821
  Serious: Yes (Other)
  Sender: FDA-Public Use
  Company Number: US-GSKJP-DK201309872002

PATIENT
  Sex: Female
  Weight: 100.5 kg

DRUGS (4)
  1. HYDROCHLOROTHIAZIDE. [Concomitant]
     Active Substance: HYDROCHLOROTHIAZIDE
  2. METHYLPHENIDATE [Concomitant]
     Active Substance: METHYLPHENIDATE
  3. HYDROCODONE BITARTRATE AND ACETAMINOPHEN [Concomitant]
     Active Substance: ACETAMINOPHEN\HYDROCODONE BITARTRATE
  4. TYKERB [Suspect]
     Active Substance: LAPATINIB DITOSYLATE
     Indication: BREAST CANCER
     Dosage: 250MG TABLETS AT 1000MG PER DAY
     Route: 048

REACTIONS (11)
  - Pain in extremity [Unknown]
  - Dry mouth [Unknown]
  - Central nervous system lesion [Unknown]
  - Hypoaesthesia [Unknown]
  - Dry throat [Unknown]
  - Skin discolouration [Unknown]
  - Throat irritation [Unknown]
  - Peripheral coldness [Unknown]
  - Lip dry [Unknown]
  - Tongue dry [Unknown]
  - Incontinence [Unknown]
